FAERS Safety Report 6548719-0 (Version None)
Quarter: 2010Q1

REPORT INFORMATION
  Report Type: 
  Country: None (occurrence: None)
  Receive Date: 20100124
  Receipt Date: 20091026
  Transmission Date: 20100710
  Serious: No
  Sender: FDA-Public Use
  Company Number: US-ALLERGAN-0914800US

PATIENT
  Sex: Female

DRUGS (4)
  1. RESTASIS [Suspect]
     Indication: DRY EYE
     Dosage: UNK
     Route: 047
     Dates: start: 20091019, end: 20091023
  2. SYNTHROID [Concomitant]
  3. PREMPRO [Concomitant]
  4. HYDROCHLOROTHIAZIDE [Concomitant]

REACTIONS (3)
  - HORMONE LEVEL ABNORMAL [None]
  - INFLUENZA LIKE ILLNESS [None]
  - ORAL DISCOMFORT [None]
